FAERS Safety Report 7461775-0 (Version None)
Quarter: 2011Q2

REPORT INFORMATION
  Report Type: 
  Country: None (occurrence: None)
  Receive Date: 20110428
  Receipt Date: 20110408
  Transmission Date: 20111010
  Serious: Yes (Hospitalization)
  Sender: FDA-Public Use
  Company Number: JPI-P-014544

PATIENT
  Age: 73 Year
  Sex: Female
  Weight: 68.0396 kg

DRUGS (8)
  1. UNSPECIFIED MEDICATION FOR CHOLESTEROL [Concomitant]
  2. XYREM [Suspect]
     Indication: POOR QUALITY SLEEP
     Dosage: 4.5 GM (2.25 GM, 2 IN 1 D), ORAL 7 GM (3.5 GM, 2 IN 1 D), ORAL 6 GM (3 GM, 2 IN 1 D), ORAL
     Route: 048
     Dates: end: 20110210
  3. XYREM [Suspect]
     Indication: FIBROMYALGIA
     Dosage: 4.5 GM (2.25 GM, 2 IN 1 D), ORAL 7 GM (3.5 GM, 2 IN 1 D), ORAL 6 GM (3 GM, 2 IN 1 D), ORAL
     Route: 048
     Dates: end: 20110210
  4. XYREM [Suspect]
     Indication: POOR QUALITY SLEEP
     Dosage: 4.5 GM (2.25 GM, 2 IN 1 D), ORAL 7 GM (3.5 GM, 2 IN 1 D), ORAL 6 GM (3 GM, 2 IN 1 D), ORAL
     Route: 048
     Dates: start: 20050621, end: 20100227
  5. XYREM [Suspect]
     Indication: FIBROMYALGIA
     Dosage: 4.5 GM (2.25 GM, 2 IN 1 D), ORAL 7 GM (3.5 GM, 2 IN 1 D), ORAL 6 GM (3 GM, 2 IN 1 D), ORAL
     Route: 048
     Dates: start: 20050621, end: 20100227
  6. XYREM [Suspect]
     Indication: POOR QUALITY SLEEP
     Dosage: 4.5 GM (2.25 GM, 2 IN 1 D), ORAL 7 GM (3.5 GM, 2 IN 1 D), ORAL 6 GM (3 GM, 2 IN 1 D), ORAL
     Route: 048
     Dates: start: 20100228
  7. XYREM [Suspect]
     Indication: FIBROMYALGIA
     Dosage: 4.5 GM (2.25 GM, 2 IN 1 D), ORAL 7 GM (3.5 GM, 2 IN 1 D), ORAL 6 GM (3 GM, 2 IN 1 D), ORAL
     Route: 048
     Dates: start: 20100228
  8. UNSPECIFIED MEDICATION FOR HYPERTENSION [Concomitant]

REACTIONS (4)
  - FALL [None]
  - JOINT DISLOCATION [None]
  - MULTIPLE FRACTURES [None]
  - PELVIC FRACTURE [None]
